FAERS Safety Report 7049328-X (Version None)
Quarter: 2010Q4

REPORT INFORMATION
  Report Type: 
  Country: None (occurrence: None)
  Receive Date: 20101018
  Receipt Date: 20100426
  Transmission Date: 20110411
  Serious: No
  Sender: FDA-Public Use
  Company Number: A0855345A

PATIENT
  Sex: Female

DRUGS (1)
  1. CEFTIN [Suspect]
     Indication: URINARY TRACT INFECTION
     Route: 065
     Dates: start: 20100409, end: 20100415

REACTIONS (2)
  - PRODUCT QUALITY ISSUE [None]
  - VOMITING [None]
